FAERS Safety Report 7906561-X (Version None)
Quarter: 2011Q4

REPORT INFORMATION
  Report Type: 
  Country: None (occurrence: None)
  Receive Date: 20111110
  Receipt Date: 20110919
  Transmission Date: 20120403
  Serious: No
  Sender: FDA-Public Use
  Company Number: US-MUTUAL PHARMACEUTICAL COMPANY, INC.-PNTM20110009

PATIENT
  Sex: Female
  Weight: 74.456 kg

DRUGS (2)
  1. CYMBALTA [Concomitant]
     Indication: FIBROMYALGIA
     Route: 048
  2. PHENTERMINE HYDROCHLORIDE [Suspect]
     Indication: DECREASED APPETITE
     Route: 048
     Dates: start: 20110622, end: 20110627

REACTIONS (6)
  - NAUSEA [None]
  - DRUG INEFFECTIVE [None]
  - BLOOD PRESSURE INCREASED [None]
  - INSOMNIA [None]
  - PALPITATIONS [None]
  - ABDOMINAL DISCOMFORT [None]
